FAERS Safety Report 22358361 (Version 1)
Quarter: 2023Q2

REPORT INFORMATION
  Report Type: Spontaneous
  Country: US (occurrence: US)
  Receive Date: 20230524
  Receipt Date: 20230524
  Transmission Date: 20230721
  Serious: No
  Sender: FDA-Public Use
  Company Number: US-TAKEDA-2023TUS050837

PATIENT
  Sex: Male
  Weight: 88 kg

DRUGS (1)
  1. CUVITRU [Suspect]
     Active Substance: HUMAN IMMUNOGLOBULIN G
     Indication: Post-acute COVID-19 syndrome
     Dosage: 12 GRAM, 1/WEEK
     Route: 058
     Dates: start: 20230516

REACTIONS (3)
  - Injection site reaction [Unknown]
  - Pain [Unknown]
  - Pyrexia [Unknown]
